FAERS Safety Report 13504026 (Version 3)
Quarter: 2018Q2

REPORT INFORMATION
  Report Type: Report from Study
  Country: IT (occurrence: IT)
  Receive Date: 20170502
  Receipt Date: 20180515
  Transmission Date: 20180711
  Serious: Yes (Other)
  Sender: FDA-Public Use
  Company Number: IT-TEVA-760608ACC

PATIENT
  Age: 80 Year
  Sex: Male

DRUGS (1)
  1. DILTIAZEM. [Suspect]
     Active Substance: DILTIAZEM
     Indication: PRODUCT USED FOR UNKNOWN INDICATION
     Dosage: DAILY
     Route: 048

REACTIONS (6)
  - Skin lesion [Unknown]
  - Arthralgia [Unknown]
  - Pain in extremity [Unknown]
  - Oedema peripheral [Unknown]
  - Skin warm [Unknown]
  - Skin tightness [Unknown]

NARRATIVE: CASE EVENT DATE: 20170318
